FAERS Safety Report 7519650-9 (Version None)
Quarter: 2011Q2

REPORT INFORMATION
  Report Type: 
  Country: None (occurrence: None)
  Receive Date: 20110524
  Receipt Date: 20110509
  Transmission Date: 20111010
  Serious: Yes (Other)
  Sender: FDA-Public Use
  Company Number: 1000020340

PATIENT
  Age: 62 Year
  Sex: Male

DRUGS (8)
  1. ROFLUMILAST (ROFLUMILAST) (TABLETS) [Suspect]
     Indication: CHRONIC OBSTRUCTIVE PULMONARY DISEASE
     Dosage: 1 DF (1 DOSAGE FORMS, 1 IN 1 D), ORAL
     Route: 048
     Dates: start: 20110303, end: 20110407
  2. SPIRIVA (TIOTROPIUM BROMIDE) (TIOTROPIUM BROMIDE) [Concomitant]
  3. STATIN (NOS) (STATIN (NOS)) (STATIN (NOS)) [Concomitant]
  4. PREDNISOLONE [Concomitant]
  5. SYMBICORT (BUDESONIDE, FORMOTEROL FUMARATE) (320 MICROGRAM(S) /KILOGRA [Concomitant]
  6. SALBUTAMOL (SALBUTAMOL) (SALBUTAMOL) [Concomitant]
  7. ROFLUMILAST (ROFLUMILAST) (TABLETS) [Suspect]
     Indication: CHRONIC OBSTRUCTIVE PULMONARY DISEASE
     Dosage: 1 DOSAGE FORM (1 DOSAGE FORMS, 1 IN 1 D), ORAL
     Route: 048
     Dates: start: 20101018, end: 20101108
  8. OXYGEN (OXYGEN) (OXYGEN) [Concomitant]

REACTIONS (7)
  - MUSCLE SPASMS [None]
  - INITIAL INSOMNIA [None]
  - BILIARY FIBROSIS [None]
  - CHOLESTATIC LIVER INJURY [None]
  - HEART RATE INCREASED [None]
  - CHOLANGITIS CHRONIC [None]
  - HEPATIC SIDEROSIS [None]
